APPROVED DRUG PRODUCT: DICLOFENAC POTASSIUM
Active Ingredient: DICLOFENAC POTASSIUM
Strength: 50MG
Dosage Form/Route: FOR SOLUTION;ORAL
Application: A215375 | Product #001 | TE Code: AB
Applicant: ANNORA PHARMA PRIVATE LTD
Approved: Mar 4, 2022 | RLD: No | RS: No | Type: RX